FAERS Safety Report 6897021-6 (Version None)
Quarter: 2010Q3

REPORT INFORMATION
  Report Type: 
  Country: None (occurrence: None)
  Receive Date: 20100802
  Receipt Date: 20070305
  Transmission Date: 20110219
  Serious: No
  Sender: FDA-Public Use
  Company Number: US-PFIZER INC-2007018309

PATIENT
  Age: 37 Year
  Sex: Male
  Weight: 108.9 kg

DRUGS (3)
  1. LYRICA [Suspect]
     Indication: LUMBAR RADICULOPATHY
  2. OPIOIDS [Concomitant]
     Indication: PAIN
  3. VICODIN [Concomitant]

REACTIONS (1)
  - BLOOD TESTOSTERONE DECREASED [None]
